FAERS Safety Report 24589273 (Version 1)
Quarter: 2024Q4

REPORT INFORMATION
  Report Type: Spontaneous
  Country: FR (occurrence: FR)
  Receive Date: 20241107
  Receipt Date: 20241107
  Transmission Date: 20250115
  Serious: Yes (Hospitalization)
  Sender: PFIZER
  Company Number: None

PATIENT
  Age: 13 Year
  Sex: Female
  Weight: 63 kg

DRUGS (10)
  1. LINEZOLID [Suspect]
     Active Substance: LINEZOLID
     Indication: Pseudarthrosis
     Dosage: 1.2 G, 1X/DAY
     Route: 042
     Dates: start: 20241018, end: 20241022
  2. PIPERACILLIN SODIUM\TAZOBACTAM SODIUM [Suspect]
     Active Substance: PIPERACILLIN SODIUM\TAZOBACTAM SODIUM
     Indication: Pseudarthrosis
     Dosage: 1.6 G, 1X/DAY
     Route: 042
     Dates: start: 20241018, end: 20241022
  3. LOVENOX [Suspect]
     Active Substance: ENOXAPARIN SODIUM
     Indication: Pseudarthrosis
     Dosage: 4000 IU, 1X/DAY
     Route: 058
     Dates: start: 20241018
  4. DAFALGAN [Suspect]
     Active Substance: ACETAMINOPHEN
     Indication: Pseudarthrosis
     Dosage: 4 G, 1X/DAY
     Route: 042
     Dates: start: 20241018, end: 20241019
  5. DAFALGAN [Suspect]
     Active Substance: ACETAMINOPHEN
     Dosage: 4 G, 1X/DAY
     Route: 048
     Dates: start: 20241020, end: 20241023
  6. NEFOPAM HYDROCHLORIDE [Suspect]
     Active Substance: NEFOPAM HYDROCHLORIDE
     Indication: Pseudarthrosis
     Dosage: 80 MG, 1X/DAY
     Dates: start: 20241018, end: 20241022
  7. ONDANSETRON [Suspect]
     Active Substance: ONDANSETRON
     Indication: Pseudarthrosis
     Dosage: 12 MG, 1X/DAY
     Route: 042
     Dates: start: 20241018, end: 20241023
  8. HYDROXYZINE [Suspect]
     Active Substance: HYDROXYZINE HYDROCHLORIDE
     Indication: Pseudarthrosis
     Dosage: 50 MG, 1X/DAY
     Route: 048
     Dates: start: 20241020, end: 20241022
  9. MORPHINE SULFATE [Suspect]
     Active Substance: MORPHINE SULFATE
     Indication: Pseudarthrosis
     Dosage: 10 MG, 1X/DAY
     Route: 048
     Dates: start: 20241018
  10. KETOPROFEN [Suspect]
     Active Substance: KETOPROFEN
     Indication: Pseudarthrosis
     Dosage: 100 MG, 1X/DAY
     Route: 048
     Dates: start: 20241019, end: 20241021

REACTIONS (3)
  - Hepatic cytolysis [Recovering/Resolving]
  - Off label use [Unknown]
  - Off label use [Unknown]

NARRATIVE: CASE EVENT DATE: 20241018
